FAERS Safety Report 5291144-3 (Version None)
Quarter: 2007Q2

REPORT INFORMATION
  Report Type: 
  Country: None (occurrence: None)
  Receive Date: 20070409
  Receipt Date: 20070329
  Transmission Date: 20071010
  Serious: Yes (Congenital Anomaly)
  Sender: FDA-Public Use
  Company Number: JP-AVENTIS-200612620JP

PATIENT
  Age: 0 Day
  Sex: Female

DRUGS (2)
  1. LANTUS [Suspect]
     Dosage: DOSE: 12 UNITS
     Route: 064
  2. PENFILL R [Concomitant]
     Dosage: DOSE: 9 - 12 UNITS
     Route: 064

REACTIONS (2)
  - DRUG EXPOSURE DURING PREGNANCY [None]
  - NEOPLASM MALIGNANT [None]
